FAERS Safety Report 18970682 (Version 1)
Quarter: 2021Q1

REPORT INFORMATION
  Report Type: Report from Study
  Country: CO (occurrence: CO)
  Receive Date: 20210304
  Receipt Date: 20210304
  Transmission Date: 20210420
  Serious: Yes (Hospitalization)
  Sender: FDA-Public Use
  Company Number: CO-INCYTE CORPORATION-2017IN008170

PATIENT

DRUGS (3)
  1. CEPHALEXIN [CEFALEXIN] [Concomitant]
     Active Substance: CEPHALEXIN
     Indication: PRODUCT USED FOR UNKNOWN INDICATION
     Route: 065
  2. JAKAVI [Suspect]
     Active Substance: RUXOLITINIB
     Indication: POLYCYTHAEMIA VERA
     Dosage: 15 MG, QD
     Route: 048
     Dates: start: 20160805
  3. NAPROXEN. [Concomitant]
     Active Substance: NAPROXEN
     Indication: PRODUCT USED FOR UNKNOWN INDICATION
     Dosage: UNK
     Route: 065

REACTIONS (8)
  - Localised infection [Unknown]
  - Inflammation [Unknown]
  - Peripheral swelling [Recovering/Resolving]
  - Illness [Unknown]
  - Varicose vein [Unknown]
  - Erythema [Recovering/Resolving]
  - Cellulitis [Recovering/Resolving]
  - Erysipelas [Recovering/Resolving]

NARRATIVE: CASE EVENT DATE: 20170912
